FAERS Safety Report 19063244 (Version 1)
Quarter: 2021Q1

REPORT INFORMATION
  Report Type: Spontaneous
  Country: US (occurrence: US)
  Receive Date: 20210326
  Receipt Date: 20210326
  Transmission Date: 20210420
  Serious: Yes (Other)
  Sender: FDA-Public Use
  Company Number: None

PATIENT
  Age: 35 Year
  Sex: Male
  Weight: 63 kg

DRUGS (4)
  1. VANCOMYCIN [Suspect]
     Active Substance: VANCOMYCIN
     Indication: SPINAL CORD ABSCESS
     Route: 042
     Dates: start: 20210224, end: 20210310
  2. METHOCARBAMOL 500MG [Concomitant]
     Dates: start: 20210324
  3. VANCOMYCIN [Suspect]
     Active Substance: VANCOMYCIN
     Indication: GRANULOMA
     Route: 042
     Dates: start: 20210224, end: 20210310
  4. IBUPROFEN 800MG [Concomitant]
     Active Substance: IBUPROFEN
     Dates: start: 20210224

REACTIONS (1)
  - Neutropenia [None]

NARRATIVE: CASE EVENT DATE: 20210308
